FAERS Safety Report 9427218 (Version 1)
Quarter: 2013Q3

REPORT INFORMATION
  Report Type: Spontaneous
  Country: US (occurrence: US)
  Receive Date: 20130730
  Receipt Date: 20130730
  Transmission Date: 20140515
  Serious: No
  Sender: FDA-Public Use
  Company Number: US-ABBOTT-12P-163-0996657-00

PATIENT
  Sex: Female

DRUGS (1)
  1. NIASPAN (COATED) [Suspect]
     Indication: BLOOD CHOLESTEROL INCREASED
     Dates: start: 20120725

REACTIONS (2)
  - Erythema [Recovered/Resolved]
  - Burning sensation [Recovered/Resolved]
